FAERS Safety Report 9493214 (Version 3)
Quarter: 2013Q3

REPORT INFORMATION
  Report Type: Report from Study
  Country: ZA (occurrence: ZA)
  Receive Date: 20130902
  Receipt Date: 20130924
  Transmission Date: 20140515
  Serious: Yes (Life-Threatening, Hospitalization)
  Sender: FDA-Public Use
  Company Number: ZA-AMGEN-ZAFCT2013060880

PATIENT
  Age: 79 Year
  Sex: Female

DRUGS (10)
  1. ETANERCEPT [Suspect]
     Indication: RHEUMATOID ARTHRITIS
     Dosage: 50 MG, QWK
     Route: 058
     Dates: start: 20120621
  2. METHOTREXATE                       /00113802/ [Concomitant]
     Indication: RHEUMATOID ARTHRITIS
     Dosage: 30 MG, 2 TIMES/WK
     Route: 048
     Dates: start: 20111128
  3. SOLU-MEDROL [Concomitant]
     Dosage: 250 MG, 1X/DAY
     Route: 042
     Dates: start: 20120719, end: 20120721
  4. PERINDOPRIL [Concomitant]
     Indication: HYPERTENSION
     Dosage: 6 MG, 1X/DAY
     Route: 048
     Dates: start: 20111128
  5. ACLASTA [Concomitant]
     Indication: OSTEOPOROSIS
     Dosage: UNK
  6. COLECALCIFEROL [Concomitant]
     Indication: OSTEOPOROSIS
     Dosage: 1 DF, WEEKLY (DOSE: 5000 UNITS. (1 IN 1 WK)
     Route: 048
     Dates: start: 20050602
  7. CALCIUM CARBONATE [Concomitant]
     Indication: OSTEOPOROSIS
     Dosage: 500 ML, 3X/DAY
     Dates: start: 20050602
  8. FOLATE [Concomitant]
     Indication: RHEUMATOID ARTHRITIS
     Dosage: 5 MG, 1X/DAY
     Route: 048
     Dates: start: 20050401
  9. CHLOROQUINE [Concomitant]
     Indication: RHEUMATOID ARTHRITIS
     Dosage: 200 MG, 1X/DAY
     Route: 048
     Dates: start: 20050401
  10. SPECTRAPAIN [Concomitant]
     Dosage: UNK UNK, UNK

REACTIONS (2)
  - Melaena [Recovered/Resolved]
  - Pancytopenia [Recovered/Resolved]
